FAERS Safety Report 10223167 (Version 1)
Quarter: 2014Q2

REPORT INFORMATION
  Report Type: Spontaneous
  Country: US (occurrence: US)
  Receive Date: 20140608
  Receipt Date: 20140608
  Transmission Date: 20141212
  Serious: No
  Sender: FDA-Public Use
  Company Number: US-TEVA-486870USA

PATIENT
  Sex: Female

DRUGS (2)
  1. COPAXONE [Suspect]
  2. AVONEX [Suspect]

REACTIONS (3)
  - Drug hypersensitivity [Unknown]
  - Malaise [Unknown]
  - Activities of daily living impaired [Unknown]
